FAERS Safety Report 12204089 (Version 2)
Quarter: 2016Q2

REPORT INFORMATION
  Report Type: Spontaneous
  Country: US (occurrence: US)
  Receive Date: 20160323
  Receipt Date: 20160413
  Transmission Date: 20160815
  Serious: No
  Sender: FDA-Public Use
  Company Number: US-PFIZER INC-2016167113

PATIENT
  Age: 47 Year
  Sex: Male
  Weight: 92.53 kg

DRUGS (11)
  1. FISH OIL [Concomitant]
     Active Substance: FISH OIL
     Indication: CARDIAC DISORDER
     Dosage: 2000MG A DAY
  2. PAXIL [Concomitant]
     Active Substance: PAROXETINE HYDROCHLORIDE
     Indication: ANXIETY
     Dosage: 10 MG, UNK
     Dates: start: 201602
  3. ACTOS [Concomitant]
     Active Substance: PIOGLITAZONE HYDROCHLORIDE
     Indication: DIABETES MELLITUS
     Dosage: 45 MG, UNK
     Dates: start: 2015
  4. LISINOPRIL. [Concomitant]
     Active Substance: LISINOPRIL
     Indication: DIABETES MELLITUS
     Dosage: 5 MG, UNK
     Dates: start: 2015
  5. LYRICA [Suspect]
     Active Substance: PREGABALIN
     Indication: DIABETIC NEUROPATHY
     Dosage: 75MG, ONE CAPSULE TWICE A DAY
     Dates: start: 20160316, end: 20160318
  6. METOPROLOL. [Concomitant]
     Active Substance: METOPROLOL
     Indication: BLOOD PRESSURE ABNORMAL
     Dosage: 50 MG, UNK
  7. METFORMIN [Concomitant]
     Active Substance: METFORMIN HYDROCHLORIDE
     Indication: DIABETES MELLITUS
     Dosage: 500 MG, UNK
     Dates: start: 2015
  8. PROTONIX [Concomitant]
     Active Substance: PANTOPRAZOLE SODIUM
     Indication: GASTROOESOPHAGEAL REFLUX DISEASE
     Dosage: 40 MG, UNK
  9. CRESTOR [Concomitant]
     Active Substance: ROSUVASTATIN CALCIUM
     Indication: BLOOD CHOLESTEROL ABNORMAL
     Dosage: 20 MG, UNK
  10. ASPIRIN. [Concomitant]
     Active Substance: ASPIRIN
     Indication: CARDIAC DISORDER
     Dosage: 81 MG, UNK
  11. PLAVIX [Concomitant]
     Active Substance: CLOPIDOGREL BISULFATE
     Indication: CARDIAC DISORDER
     Dosage: 75 MG, UNK

REACTIONS (5)
  - Fatigue [Not Recovered/Not Resolved]
  - Muscular weakness [Not Recovered/Not Resolved]
  - Vision blurred [Not Recovered/Not Resolved]
  - Dizziness [Recovering/Resolving]
  - Impaired driving ability [Unknown]

NARRATIVE: CASE EVENT DATE: 20160317
